FAERS Safety Report 13454365 (Version 1)
Quarter: 2017Q2

REPORT INFORMATION
  Report Type: Spontaneous
  Country: US (occurrence: US)
  Receive Date: 20170418
  Receipt Date: 20170418
  Transmission Date: 20170830
  Serious: Yes (Other)
  Sender: FDA-Public Use
  Company Number: US-TEVA-760804USA

PATIENT

DRUGS (4)
  1. HYDROCODONE [Interacting]
     Active Substance: HYDROCODONE
     Route: 064
  2. FLEXERIL [Concomitant]
     Active Substance: CYCLOBENZAPRINE HYDROCHLORIDE
     Route: 064
  3. VISTARIL [Concomitant]
     Active Substance: HYDROXYZINE PAMOATE
     Route: 064
  4. GABAPENTIN. [Suspect]
     Active Substance: GABAPENTIN
     Dosage: 4800MG/DAY
     Route: 064

REACTIONS (3)
  - Drug interaction [Unknown]
  - Drug withdrawal syndrome neonatal [Unknown]
  - Foetal exposure during pregnancy [Unknown]
